FAERS Safety Report 13002174 (Version 2)
Quarter: 2016Q4

REPORT INFORMATION
  Report Type: Spontaneous
  Country: US (occurrence: US)
  Receive Date: 20161206
  Receipt Date: 20161207
  Transmission Date: 20170207
  Serious: Yes (Hospitalization, Other)
  Sender: FDA-Public Use
  Company Number: US-GLAXOSMITHKLINE-US2016GSK179701

PATIENT
  Age: 50 Year
  Sex: Female

DRUGS (9)
  1. BENLYSTA [Suspect]
     Active Substance: BELIMUMAB
     Indication: ANTINUCLEAR ANTIBODY POSITIVE
     Dosage: 1000 MG, CYC
     Dates: start: 201602
  2. NOVOLOG [Concomitant]
     Active Substance: INSULIN ASPART
  3. DOXYCYCLINE. [Concomitant]
     Active Substance: DOXYCYCLINE
  4. NASACORT [Concomitant]
     Active Substance: TRIAMCINOLONE ACETONIDE
  5. MAGNESIUM SALICYLATE [Concomitant]
     Active Substance: MAGNESIUM SALICYLATE
  6. IBUPROFEN. [Concomitant]
     Active Substance: IBUPROFEN
  7. SYNTHROID [Concomitant]
     Active Substance: LEVOTHYROXINE SODIUM
  8. FLUDROCORTISONE [Concomitant]
     Active Substance: FLUDROCORTISONE
  9. PENICILLIN VK [Concomitant]
     Active Substance: PENICILLIN V POTASSIUM

REACTIONS (38)
  - Cellulitis [Unknown]
  - Pruritus [Not Recovered/Not Resolved]
  - Hypopituitarism [Unknown]
  - Macular oedema [Not Recovered/Not Resolved]
  - Rheumatoid arthritis [Unknown]
  - Protein total increased [Unknown]
  - Headache [Not Recovered/Not Resolved]
  - Fatigue [Unknown]
  - Dehydration [Unknown]
  - Oedema [Unknown]
  - Hypertension [Unknown]
  - Pain in extremity [Not Recovered/Not Resolved]
  - Urine ketone body present [Recovering/Resolving]
  - Infection [Unknown]
  - Skin ulcer [Not Recovered/Not Resolved]
  - Inflammation [Not Recovered/Not Resolved]
  - Joint swelling [Unknown]
  - Double stranded DNA antibody positive [Unknown]
  - Antinuclear antibody increased [Unknown]
  - Immunoglobulins decreased [Unknown]
  - Sinusitis [Unknown]
  - Cortisol deficiency [Unknown]
  - Ketoacidosis [Unknown]
  - Retinal haemorrhage [Not Recovered/Not Resolved]
  - Complement factor increased [Unknown]
  - Complement factor C4 decreased [Unknown]
  - Condition aggravated [Not Recovered/Not Resolved]
  - Off label use [Unknown]
  - White blood cells urine positive [Recovering/Resolving]
  - Diabetic ketoacidosis [Unknown]
  - Arthralgia [Unknown]
  - Protein urine present [Recovering/Resolving]
  - Complement factor C3 decreased [Unknown]
  - Oedema peripheral [Not Recovered/Not Resolved]
  - Pain in extremity [Not Recovered/Not Resolved]
  - Urinary tract infection [Recovering/Resolving]
  - Cystitis [Unknown]
  - Localised infection [Not Recovered/Not Resolved]

NARRATIVE: CASE EVENT DATE: 201602
